FAERS Safety Report 18212852 (Version 1)
Quarter: 2020Q3

REPORT INFORMATION
  Report Type: Spontaneous
  Country: US (occurrence: US)
  Receive Date: 20200831
  Receipt Date: 20200831
  Transmission Date: 20201103
  Serious: Yes (Hospitalization, Other)
  Sender: FDA-Public Use
  Company Number: US-SUNOVION-2020SUN002481

PATIENT
  Age: 45 Year
  Sex: Male
  Weight: 86.17 kg

DRUGS (3)
  1. LATUDA [Suspect]
     Active Substance: LURASIDONE HYDROCHLORIDE
     Dosage: UNK
     Route: 048
  2. PROPRANOLOL [Concomitant]
     Active Substance: PROPRANOLOL HYDROCHLORIDE
     Indication: TREMOR
     Dosage: UNK
  3. LATUDA [Suspect]
     Active Substance: LURASIDONE HYDROCHLORIDE
     Indication: BIPOLAR DISORDER
     Dosage: 60 MG, QD (AFTER EVENING MEAL)
     Route: 048
     Dates: end: 20200818

REACTIONS (11)
  - Tongue thrust [Unknown]
  - Protrusion tongue [Unknown]
  - Respiration abnormal [Unknown]
  - Hyperhidrosis [Unknown]
  - Dyspnoea [Unknown]
  - Tremor [Unknown]
  - Aphasia [Unknown]
  - Dyskinesia [Unknown]
  - Muscle twitching [Unknown]
  - Paralysis [Unknown]
  - Anaphylactic reaction [Unknown]

NARRATIVE: CASE EVENT DATE: 20200817
